FAERS Safety Report 9225617 (Version 2)
Quarter: 2013Q2

REPORT INFORMATION
  Report Type: Spontaneous
  Country: US (occurrence: US)
  Receive Date: 20130411
  Receipt Date: 20130627
  Transmission Date: 20140414
  Serious: Yes (Death, Life-Threatening, Congenital Anomaly)
  Sender: FDA-Public Use
  Company Number: US-GLAXOSMITHKLINE-A1018895A

PATIENT
  Sex: Male

DRUGS (3)
  1. LAMICTAL XR [Suspect]
     Indication: CORTICAL DYSPLASIA
     Route: 064
  2. FOLIC ACID [Concomitant]
     Route: 064
  3. PRENATAL VITAMINS [Concomitant]
     Route: 064

REACTIONS (4)
  - Cytogenetic abnormality [Unknown]
  - Death [Fatal]
  - Congenital anomaly [Unknown]
  - Foetal exposure during pregnancy [Unknown]
